FAERS Safety Report 12542412 (Version 1)
Quarter: 2016Q3

REPORT INFORMATION
  Report Type: Spontaneous
  Country: US (occurrence: US)
  Receive Date: 20160708
  Receipt Date: 20160708
  Transmission Date: 20161109
  Serious: Yes (Other)
  Sender: FDA-Public Use
  Company Number: US-CELGENEUS-USA-2016071046

PATIENT
  Sex: Female

DRUGS (2)
  1. REVLIMID [Suspect]
     Active Substance: LENALIDOMIDE
     Indication: PLASMA CELL MYELOMA
     Route: 048
     Dates: start: 201601
  2. REVLIMID [Suspect]
     Active Substance: LENALIDOMIDE
     Route: 048
     Dates: start: 201604

REACTIONS (8)
  - Cough [Unknown]
  - Thrombosis [Unknown]
  - Rash generalised [Unknown]
  - Visual acuity reduced [Unknown]
  - Pneumonia [Unknown]
  - Eye infection [Unknown]
  - Oral herpes [Unknown]
  - Oral infection [Unknown]

NARRATIVE: CASE EVENT DATE: 2016
